FAERS Safety Report 5077563-9 (Version None)
Quarter: 2006Q3

REPORT INFORMATION
  Report Type: 
  Country: None (occurrence: None)
  Receive Date: 20060810
  Receipt Date: 20060329
  Transmission Date: 20061208
  Serious: No
  Sender: FDA-Public Use
  Company Number: US-GLAXOSMITHKLINE-A0600663A

PATIENT

DRUGS (1)
  1. PAROXETINE HCL [Suspect]
     Indication: PANIC REACTION
     Route: 048

REACTIONS (4)
  - ADVERSE EVENT [None]
  - ANXIETY [None]
  - NIGHTMARE [None]
  - PANIC REACTION [None]
